FAERS Safety Report 5444126-2 (Version None)
Quarter: 2007Q3

REPORT INFORMATION
  Report Type: 
  Country: None (occurrence: None)
  Receive Date: 20070831
  Receipt Date: 20070820
  Transmission Date: 20080115
  Serious: Yes (Other)
  Sender: FDA-Public Use
  Company Number: DSM-2007-00620

PATIENT
  Age: 76 Year
  Sex: Female
  Weight: 72 kg

DRUGS (2)
  1. OLMESARTAN MEDOXOMIL [Suspect]
     Indication: HYPERTENSION
     Dosage: 20 MG (20 MG, 1 IN 1 D),ORAL
     Route: 048
     Dates: start: 20070606, end: 20070718
  2. ALDACTONE (SPIRONOLACTONE) (25 MILLIGRAM, TABLET) (SPIRONOLACTONE) [Concomitant]

REACTIONS (4)
  - ASTHENIA [None]
  - COUGH [None]
  - DIZZINESS [None]
  - HYPOTENSION [None]
